FAERS Safety Report 19159218 (Version 1)
Quarter: 2021Q2

REPORT INFORMATION
  Report Type: Spontaneous
  Country: NL (occurrence: NL)
  Receive Date: 20210420
  Receipt Date: 20210420
  Transmission Date: 20210717
  Serious: Yes (Other)
  Sender: FDA-Public Use
  Company Number: NL-TEVA-2021-NL-1901813

PATIENT
  Sex: Male
  Weight: 75 kg

DRUGS (3)
  1. ATORVASTATINE TABLET 40MG / BRAND NAME NOT SPECIFIED [Suspect]
     Active Substance: ATORVASTATIN
     Indication: HYPERCHOLESTEROLAEMIA
     Dosage: 1 DOSAGE FORMS DAILY; THERAPY END DATE : ASKED BUT UNKNOWN
     Dates: start: 20200108
  2. ENALAPRIL TABLET 10MG / BRAND NAME NOT SPECIFIED [Concomitant]
     Active Substance: ENALAPRIL
     Dosage: 10 MG (MILLIGRAM) ,THERAPY START DATE AND END DATE : ASKED BUT UNKNOWN
  3. ACETYLSALICYLZUUR TABLET  80MG / BRAND NAME NOT SPECIFIED [Concomitant]
     Active Substance: ASPIRIN
     Dosage: 80 MG (MILLIGRAM) , THERAPY START DATE AND END DATE : ASKED BUT UNKNOWN

REACTIONS (3)
  - Erectile dysfunction [Not Recovered/Not Resolved]
  - Constipation [Recovering/Resolving]
  - Libido decreased [Not Recovered/Not Resolved]
